FAERS Safety Report 18534474 (Version 2)
Quarter: 2020Q4

REPORT INFORMATION
  Report Type: Spontaneous
  Country: BG (occurrence: BG)
  Receive Date: 20201123
  Receipt Date: 20201208
  Transmission Date: 20210114
  Serious: Yes (Death, Hospitalization)
  Sender: FDA-Public Use
  Company Number: BG-INCYTE CORPORATION-2020IN011578

PATIENT

DRUGS (1)
  1. JAKAVI [Suspect]
     Active Substance: RUXOLITINIB
     Indication: PRIMARY MYELOFIBROSIS
     Dosage: 20 MG, BID (TWICE DAILY)
     Route: 048
     Dates: start: 20190215, end: 20201006

REACTIONS (2)
  - Post procedural complication [Fatal]
  - Biliary colic [Unknown]

NARRATIVE: CASE EVENT DATE: 202010
